FAERS Safety Report 23342667 (Version 1)
Quarter: 2023Q4

REPORT INFORMATION
  Report Type: Spontaneous
  Country: CA (occurrence: CA)
  Receive Date: 20231227
  Receipt Date: 20231227
  Transmission Date: 20240109
  Serious: Yes (Hospitalization, Other)
  Sender: FDA-Public Use
  Company Number: CA-FreseniusKabi-FK202321162

PATIENT
  Age: 26 Year
  Sex: Male
  Weight: 56 kg

DRUGS (21)
  1. FENTANYL [Suspect]
     Active Substance: FENTANYL\FENTANYL CITRATE
     Indication: Back pain
     Dosage: DOSAGE FORM: NOT SPECIFIED
     Route: 065
  2. PIPERACILLIN SODIUM\TAZOBACTAM SODIUM [Suspect]
     Active Substance: PIPERACILLIN SODIUM\TAZOBACTAM SODIUM
     Indication: Product used for unknown indication
     Route: 065
  3. SOLU-MEDROL [Suspect]
     Active Substance: METHYLPREDNISOLONE SODIUM SUCCINATE
     Indication: Product used for unknown indication
     Dosage: ROA: UNKNOWN?FORM: NOT SPECIFIED
  4. SKYRIZI [Suspect]
     Active Substance: RISANKIZUMAB-RZAA
     Indication: Product used for unknown indication
     Dosage: ROA: SUBCUTANEOUS?FORM: SOLUTION
  5. PREDNISONE ACETATE [Suspect]
     Active Substance: PREDNISONE ACETATE
     Indication: Product used for unknown indication
     Dosage: ROA: UNKNOWN
  6. HUMIRA [Suspect]
     Active Substance: ADALIMUMAB
     Indication: Product used for unknown indication
     Dosage: ROA: SUBCUTANEOUS?FORM: SOLUTION SUBCUTANEOUS
  7. HUMIRA [Suspect]
     Active Substance: ADALIMUMAB
     Dosage: ROA: SUBCUTANEOUS?FORM: SOLUTION FOR INJECTION
  8. INFLIXIMAB [Suspect]
     Active Substance: INFLIXIMAB
     Indication: Crohn^s disease
     Dosage: ROA: INTRAVENOUS
  9. INFLIXIMAB [Suspect]
     Active Substance: INFLIXIMAB
     Dosage: ROA: INTRAVENOUS
  10. INFLIXIMAB [Suspect]
     Active Substance: INFLIXIMAB
     Dosage: ROA: INTRAVENOUS
  11. INFLIXIMAB [Suspect]
     Active Substance: INFLIXIMAB
     Dosage: ROA: INTRAVENOUS
  12. INFLIXIMAB [Suspect]
     Active Substance: INFLIXIMAB
     Dosage: ROA: INTRAVENOUS
  13. INFLIXIMAB [Suspect]
     Active Substance: INFLIXIMAB
     Dosage: ROA: INTRAVENOUS
  14. INFLIXIMAB [Suspect]
     Active Substance: INFLIXIMAB
     Dosage: ROA: INTRAVENOUS?FORM: NOT SPECIFIED
  15. INFLIXIMAB [Suspect]
     Active Substance: INFLIXIMAB
     Dosage: ROA: INTRAVENOUS
  16. INFLIXIMAB [Suspect]
     Active Substance: INFLIXIMAB
     Dosage: ROA: INTRAVENOUS
  17. METHOTREXATE SODIUM [Concomitant]
     Active Substance: METHOTREXATE SODIUM
     Indication: Product used for unknown indication
     Dosage: ROA: UNKNOWN
  18. USTEKINUMAB [Concomitant]
     Active Substance: USTEKINUMAB
     Indication: Product used for unknown indication
     Dosage: ROA: SUBCUTANEOUS
  19. FLAGYL [Concomitant]
     Active Substance: METRONIDAZOLE\METRONIDAZOLE HYDROCHLORIDE
     Indication: Product used for unknown indication
     Dosage: ROA: UNKNOWN?NOT SPECIFIED: NOT SPECIFIED
  20. ENTYVIO [Concomitant]
     Active Substance: VEDOLIZUMAB
     Indication: Product used for unknown indication
     Dosage: ROA: UNKNOWN?NOT SPECIFIED: POWDER FOR SOLUTION INTRAVENOUS
  21. AZATHIOPRINE SODIUM [Concomitant]
     Active Substance: AZATHIOPRINE SODIUM
     Indication: Product used for unknown indication
     Dosage: ROA: UNKNOWN

REACTIONS (22)
  - Abdominal pain [Not Recovered/Not Resolved]
  - Arthralgia [Not Recovered/Not Resolved]
  - Back pain [Not Recovered/Not Resolved]
  - Cachexia [Not Recovered/Not Resolved]
  - Condition aggravated [Not Recovered/Not Resolved]
  - Condition aggravated [Not Recovered/Not Resolved]
  - Crohn^s disease [Not Recovered/Not Resolved]
  - Decreased appetite [Not Recovered/Not Resolved]
  - Diarrhoea [Not Recovered/Not Resolved]
  - General physical health deterioration [Not Recovered/Not Resolved]
  - Headache [Not Recovered/Not Resolved]
  - Hypotension [Not Recovered/Not Resolved]
  - Ileocaecal resection [Not Recovered/Not Resolved]
  - Ileostomy [Not Recovered/Not Resolved]
  - Intervertebral disc protrusion [Not Recovered/Not Resolved]
  - Intestinal stenosis [Not Recovered/Not Resolved]
  - Intra-abdominal fluid collection [Not Recovered/Not Resolved]
  - Nasopharyngitis [Not Recovered/Not Resolved]
  - Osteosarcoma recurrent [Not Recovered/Not Resolved]
  - Postoperative abscess [Not Recovered/Not Resolved]
  - Small intestinal stenosis [Not Recovered/Not Resolved]
  - Unevaluable event [Not Recovered/Not Resolved]
